FAERS Safety Report 18564897 (Version 1)
Quarter: 2020Q4

REPORT INFORMATION
  Report Type: Spontaneous
  Country: US (occurrence: US)
  Receive Date: 20201005
  Receipt Date: 20201005
  Transmission Date: 20210114
  Serious: Yes (Other)
  Sender: FDA-Public Use
  Company Number: None

PATIENT
  Age: 1 Decade
  Sex: Male

DRUGS (1)
  1. HYDROXYCHLOROQUINE [Suspect]
     Active Substance: HYDROXYCHLOROQUINE
     Indication: COVID-19
     Dosage: DOSAGE: 400MG: DAY 1/ 200MG DAY 2-5/
     Route: 048
     Dates: start: 2020

REACTIONS (6)
  - Septic shock [None]
  - Electrocardiogram QT prolonged [None]
  - Gastrointestinal disorder [None]
  - Neck pain [None]
  - Intentional product use issue [None]
  - Myocarditis [None]
